FAERS Safety Report 4466201-1 (Version None)
Quarter: 2004Q4

REPORT INFORMATION
  Report Type: 
  Country: None (occurrence: None)
  Receive Date: 20041005
  Receipt Date: 20040928
  Transmission Date: 20050328
  Serious: Yes (Death)
  Sender: FDA-Public Use
  Company Number: US-JNJFOC-20040900159

PATIENT
  Sex: Male

DRUGS (17)
  1. SPORANOX [Suspect]
     Indication: ORAL CANDIDIASIS
     Route: 049
  2. FORTAZ [Concomitant]
  3. TOBRAMYCIN [Concomitant]
  4. NORVIS [Concomitant]
  5. ANTRINA [Concomitant]
  6. ANTRINA [Concomitant]
  7. DAPSONE [Concomitant]
  8. LAMICTAL [Concomitant]
  9. REYATAZ [Concomitant]
  10. VIREAD [Concomitant]
  11. RESTORIL [Concomitant]
  12. ZITHROMAX [Concomitant]
  13. PROVENTIL [Concomitant]
  14. ZYRTEC [Concomitant]
  15. VICODIN [Concomitant]
  16. VICODIN [Concomitant]
  17. MOTRIN [Concomitant]

REACTIONS (4)
  - ACUTE RESPIRATORY DISTRESS SYNDROME [None]
  - GENERAL PHYSICAL HEALTH DETERIORATION [None]
  - PNEUMOTHORAX [None]
  - RENAL FAILURE [None]
